FAERS Safety Report 23327636 (Version 1)
Quarter: 2023Q4

REPORT INFORMATION
  Report Type: Spontaneous
  Country: US (occurrence: None)
  Receive Date: 20231221
  Receipt Date: 20231221
  Transmission Date: 20240109
  Serious: Yes (Other)
  Sender: FDA-Public Use
  Company Number: None

PATIENT
  Age: 12 Year
  Sex: Female
  Weight: 57.5 kg

DRUGS (2)
  1. PRUCALOPRIDE [Suspect]
     Active Substance: PRUCALOPRIDE
     Indication: Constipation
     Dosage: FREQUENCY : DAILY;?
     Route: 048
     Dates: start: 20230401, end: 20230414
  2. CETIRIZINE [Concomitant]
     Active Substance: CETIRIZINE HYDROCHLORIDE
     Dates: start: 20221201

REACTIONS (2)
  - Drug eruption [None]
  - Therapy cessation [None]

NARRATIVE: CASE EVENT DATE: 20230407
